FAERS Safety Report 18940796 (Version 3)
Quarter: 2021Q2

REPORT INFORMATION
  Report Type: Spontaneous
  Country: DE (occurrence: DE)
  Receive Date: 20210225
  Receipt Date: 20210629
  Transmission Date: 20210717
  Serious: Yes (Other)
  Sender: FDA-Public Use
  Company Number: DE-ASTRAZENECA-2021A065560

PATIENT
  Age: 29842 Day
  Sex: Female

DRUGS (5)
  1. MORPHIN [Concomitant]
     Active Substance: MORPHINE
     Dosage: 100
  2. DICLOFENAC [Concomitant]
     Active Substance: DICLOFENAC
  3. FASENRA [Suspect]
     Active Substance: BENRALIZUMAB
     Indication: ASTHMA
     Route: 058
     Dates: start: 20200720
  4. TILIDIN [Concomitant]
     Active Substance: NALOXONE HYDROCHLORIDE\TILIDINE HYDROCHLORIDE
  5. TRAMAL [Suspect]
     Active Substance: TRAMADOL
     Dosage: 100.0MG UNKNOWN
     Route: 065

REACTIONS (7)
  - Drug interaction [Unknown]
  - Muscle rupture [Unknown]
  - Bursitis [Unknown]
  - Nausea [Recovered/Resolved]
  - Drug ineffective [Unknown]
  - Dizziness [Recovered/Resolved]
  - Rotator cuff syndrome [Unknown]
